FAERS Safety Report 9564720 (Version 2)
Quarter: 2013Q4

REPORT INFORMATION
  Report Type: Spontaneous
  Country: US (occurrence: US)
  Receive Date: 20130930
  Receipt Date: 20131107
  Transmission Date: 20140711
  Serious: No
  Sender: FDA-Public Use
  Company Number: US-PFIZER INC-2013279761

PATIENT
  Age: 80 Year
  Sex: Female
  Weight: 77.1 kg

DRUGS (1)
  1. XELJANZ [Suspect]
     Indication: RHEUMATOID ARTHRITIS
     Dosage: 5 MG, 2X/DAY
     Route: 048
     Dates: start: 20130911, end: 20130921

REACTIONS (2)
  - Product label issue [Unknown]
  - Feeling abnormal [Recovered/Resolved]
